FAERS Safety Report 4726830-4 (Version None)
Quarter: 2005Q3

REPORT INFORMATION
  Report Type: 
  Country: None (occurrence: None)
  Receive Date: 20050726
  Receipt Date: 20050715
  Transmission Date: 20060218
  Serious: Yes (Hospitalization)
  Sender: FDA-Public Use
  Company Number: DE-2005-014040

PATIENT
  Age: 72 Year
  Sex: Male
  Weight: 86 kg

DRUGS (6)
  1. CAMPATH [Suspect]
     Indication: B-CELL SMALL LYMPHOCYTIC LYMPHOMA
     Dosage: 20 + 3 + 10 + 30 MG, 1X/WEEK, INTRAVENOUS
     Route: 011
     Dates: start: 20050613, end: 20050615
  2. CAMPATH [Suspect]
     Indication: B-CELL SMALL LYMPHOCYTIC LYMPHOMA
     Dosage: 20 + 3 + 10 + 30 MG, 1X/WEEK, INTRAVENOUS
     Route: 011
     Dates: start: 20050620
  3. VALTREX [Concomitant]
  4. PANTOPRAZOLE SODIUM [Concomitant]
  5. KEPINOL [Concomitant]
  6. SOLU-DECORTIN-H (PREDNISOLONE SODIUM SUCCINATE) [Concomitant]

REACTIONS (2)
  - C-REACTIVE PROTEIN INCREASED [None]
  - PYREXIA [None]
